FAERS Safety Report 9722259 (Version 3)
Quarter: 2014Q1

REPORT INFORMATION
  Report Type: Report from Study
  Country: US (occurrence: US)
  Receive Date: 20131202
  Receipt Date: 20140123
  Transmission Date: 20141002
  Serious: Yes (Hospitalization)
  Sender: FDA-Public Use
  Company Number: US-JNJFOC-20131116615

PATIENT
  Age: 18 Year
  Sex: Male
  Weight: 94.9 kg

DRUGS (18)
  1. HYDROMORPHONE [Concomitant]
     Route: 065
  2. MORPHINE [Concomitant]
     Route: 065
  3. REMICADE [Suspect]
     Indication: COLITIS ULCERATIVE
     Route: 042
     Dates: start: 20121116, end: 20121231
  4. HYDROCORTISONE [Concomitant]
     Route: 065
  5. PREDNISONE [Concomitant]
     Route: 065
  6. METHOTREXATE [Concomitant]
     Route: 065
  7. HUMIRA [Concomitant]
     Route: 065
     Dates: start: 20130812
  8. CALCIUM CARBONATE [Concomitant]
     Route: 065
  9. FERROUS SULFATE [Concomitant]
     Route: 065
  10. FOLIC ACID [Concomitant]
     Route: 065
  11. MULTIVITAMINS [Concomitant]
     Route: 065
  12. HYOSCYAMINE [Concomitant]
     Route: 065
  13. ONDANSETRON [Concomitant]
     Route: 065
  14. AMLODIPINE [Concomitant]
     Route: 065
  15. DIPHENHYDRAMINE [Concomitant]
     Route: 065
  16. ESOMEPRAZOLE [Concomitant]
     Route: 065
  17. METOPROLOL [Concomitant]
     Route: 065
  18. TRAMADOL [Concomitant]
     Route: 065

REACTIONS (1)
  - Colitis ulcerative [Not Recovered/Not Resolved]
